FAERS Safety Report 22112720 (Version 3)
Quarter: 2023Q2

REPORT INFORMATION
  Report Type: Spontaneous
  Country: US (occurrence: None)
  Receive Date: 20230319
  Receipt Date: 20230504
  Transmission Date: 20230721
  Serious: No
  Sender: FDA-Public Use
  Company Number: 2023A056449

PATIENT
  Sex: Female
  Weight: 83.9 kg

DRUGS (1)
  1. BYDUREON BCISE [Suspect]
     Active Substance: EXENATIDE
     Indication: Diabetes mellitus
     Route: 058
     Dates: start: 202211

REACTIONS (3)
  - Visual impairment [Unknown]
  - Wrong technique in device usage process [Unknown]
  - Device issue [Unknown]
